FAERS Safety Report 7124201-7 (Version None)
Quarter: 2010Q4

REPORT INFORMATION
  Report Type: 
  Country: None (occurrence: None)
  Receive Date: 20101126
  Receipt Date: 20101115
  Transmission Date: 20110411
  Serious: Yes (Hospitalization, Other)
  Sender: FDA-Public Use
  Company Number: PHHY2009US66666

PATIENT
  Sex: Male
  Weight: 66 kg

DRUGS (18)
  1. EXJADE [Suspect]
     Dosage: 1250 MG, QD
     Route: 048
     Dates: start: 20080501
  2. TYLENOL (CAPLET) [Concomitant]
     Dosage: 650 MG BY MOUTH EVERY FOUR HOURS AS NEEDED WITH A MAXIMUM TYLENOL DOSE OF 04 G PER DAY
     Route: 048
  3. FOSAMAX [Concomitant]
     Dosage: 70 MG ONE BY MOUTH WEEKLY
     Route: 048
  4. AMITRIPTYLINE [Concomitant]
     Dosage: 25 MG ONE TABLET BY MOUTH EVERY BEDTIME
     Route: 048
  5. DIGOXIN [Concomitant]
     Dosage: 0.125 MG BY MOUTH DAILY
  6. DOXAZOSIN MESYLATE [Concomitant]
     Dosage: 4 MG BY MOUTH DAILY
     Route: 048
  7. LASIX [Concomitant]
     Dosage: 40 MG BY MOUTH DAILY
     Route: 048
  8. NEURONTIN [Concomitant]
     Dosage: 100 MG BY MOUTH TWICE DAILY
     Route: 048
  9. COUMADIN [Concomitant]
     Dosage: DOSING PER PHARMACY
  10. METOPROLOL SUCCINATE [Concomitant]
     Dosage: 100 MG BY MOUTH TWICE DAILY
     Route: 048
  11. TRAMADOL HCL [Concomitant]
     Dosage: 50 MG BY MOUTH EVERY FOUR HOURS AS NEEDED
     Route: 048
  12. VICODIN [Concomitant]
     Dosage: ONE BY MOUTH EVERY FOUR HOURS AS NEEDED
     Route: 048
  13. ACETYLCYSTEINE [Concomitant]
     Dosage: UNK
     Route: 048
     Dates: start: 20091217
  14. LOVENOX [Concomitant]
     Dosage: 30 MG, UNK
     Route: 048
  15. LYRICA [Concomitant]
     Dosage: 50 MG, UNK
     Route: 048
  16. LEVAQUIN [Concomitant]
     Dosage: 500 MG BY MOUTH DAILY FOR THE NEXT FIVE DAYS
     Route: 048
  17. DECITABINE [Concomitant]
  18. BLOOD TRANSFUSION [Concomitant]
     Dosage: EVERY THREE WEEKS

REACTIONS (35)
  - AORTIC ANEURYSM [None]
  - AORTIC VALVE REPLACEMENT [None]
  - ATRIAL FIBRILLATION [None]
  - BLOOD CREATININE INCREASED [None]
  - BLOOD PRESSURE DECREASED [None]
  - CARDIAC MURMUR [None]
  - CELLULITIS [None]
  - CONGESTIVE CARDIOMYOPATHY [None]
  - DEBRIDEMENT [None]
  - DECREASED APPETITE [None]
  - DRY GANGRENE [None]
  - ERYTHEMA [None]
  - FATIGUE [None]
  - GANGRENE [None]
  - GRANULOCYTOPENIA [None]
  - HAEMOGLOBIN DECREASED [None]
  - IMPAIRED HEALING [None]
  - INCISION SITE HAEMORRHAGE [None]
  - ISCHAEMIA [None]
  - LEG AMPUTATION [None]
  - MUSCLE NECROSIS [None]
  - OEDEMA PERIPHERAL [None]
  - PAIN [None]
  - PERIPHERAL ARTERIAL OCCLUSIVE DISEASE [None]
  - PERIPHERAL VASCULAR DISORDER [None]
  - POLYMYALGIA RHEUMATICA [None]
  - PRURITUS [None]
  - RASH [None]
  - RENAL FAILURE CHRONIC [None]
  - SKIN EXFOLIATION [None]
  - SKIN ULCER [None]
  - SOMNOLENCE [None]
  - URINARY RETENTION [None]
  - WOUND DEHISCENCE [None]
  - WOUND SECRETION [None]
